FAERS Safety Report 4503110-3 (Version None)
Quarter: 2004Q4

REPORT INFORMATION
  Report Type: 
  Country: None (occurrence: None)
  Receive Date: 20041112
  Receipt Date: 20041028
  Transmission Date: 20050328
  Serious: Yes (Hospitalization)
  Sender: FDA-Public Use
  Company Number: PHBS2004NZ10215

PATIENT
  Age: 67 Year
  Sex: Female

DRUGS (7)
  1. VISUDYNE [Suspect]
     Dates: start: 20040401, end: 20040401
  2. FERRO-GRADUMET [Concomitant]
  3. ACCUPRIL [Concomitant]
  4. DILTIAZEM [Concomitant]
  5. GLUCOPHAGE [Concomitant]
  6. GLICLAZIDE [Concomitant]
  7. SALBUTAMOL [Concomitant]

REACTIONS (5)
  - ANGINA PECTORIS [None]
  - FAECAL OCCULT BLOOD POSITIVE [None]
  - GASTROINTESTINAL HAEMORRHAGE [None]
  - IRON DEFICIENCY ANAEMIA [None]
  - MEAN CELL VOLUME DECREASED [None]
